FAERS Safety Report 17006788 (Version 1)
Quarter: 2019Q4

REPORT INFORMATION
  Report Type: Report from Study
  Country: US (occurrence: US)
  Receive Date: 20191107
  Receipt Date: 20191107
  Transmission Date: 20200122
  Serious: Yes (Death, Hospitalization, Other)
  Sender: FDA-Public Use
  Company Number: US-GILEAD-2018-0353274

PATIENT
  Age: 78 Year
  Sex: Male
  Weight: 70.1 kg

DRUGS (77)
  1. FLUDARABINE [Suspect]
     Active Substance: FLUDARABINE PHOSPHATE
     Indication: BONE MARROW CONDITIONING REGIMEN
     Dosage: 30 MG/M2, QD
     Route: 042
     Dates: start: 20180725, end: 20180727
  2. BACTRIM DS [Concomitant]
     Active Substance: SULFAMETHOXAZOLE\TRIMETHOPRIM
     Dosage: 1,OTHER,TWICE DAILY
     Route: 048
     Dates: start: 20180824, end: 20180912
  3. ASPIRIN                            /00002701/ [Concomitant]
     Active Substance: ASPIRIN
     Dosage: UNK
     Dates: start: 2013, end: 20180801
  4. CALCIUM GLUCONATE. [Concomitant]
     Active Substance: CALCIUM GLUCONATE
     Dosage: UNK
     Dates: start: 20180702, end: 20180702
  5. POTASSIUM CHLORIDE. [Concomitant]
     Active Substance: POTASSIUM CHLORIDE
     Dosage: UNK
     Dates: start: 20180801, end: 20180801
  6. POTASSIUM CHLORIDE. [Concomitant]
     Active Substance: POTASSIUM CHLORIDE
     Dosage: UNK
     Dates: start: 20180802, end: 20180802
  7. PREDNISONE. [Concomitant]
     Active Substance: PREDNISONE
     Dosage: 50,MG,DAILY
     Route: 048
     Dates: start: 20180911, end: 20190912
  8. PLATELETS [Concomitant]
     Active Substance: HUMAN PLATELET, ALLOGENIC
     Dosage: UNK
     Dates: start: 20180725, end: 20180725
  9. FLUCONAZOLE. [Concomitant]
     Active Substance: FLUCONAZOLE
     Dosage: 400,MG,DAILY
     Route: 041
     Dates: start: 20180913, end: 20180914
  10. LEVETIRACETAM. [Concomitant]
     Active Substance: LEVETIRACETAM
     Dosage: 1000,MG,TWICE DAILY
     Route: 041
     Dates: start: 20180811, end: 20180823
  11. ACYCLOVIR                          /00587301/ [Concomitant]
     Active Substance: ACYCLOVIR
     Dosage: UNK
     Dates: start: 20180913, end: 20180914
  12. CYCLOPHOSPHAMIDE. [Suspect]
     Active Substance: CYCLOPHOSPHAMIDE
     Indication: BONE MARROW CONDITIONING REGIMEN
     Dosage: 500 MG/M2, QD
     Route: 042
     Dates: start: 20180725, end: 20180727
  13. BACTRIM DS [Concomitant]
     Active Substance: SULFAMETHOXAZOLE\TRIMETHOPRIM
     Indication: NOCARDIOSIS
     Dosage: UNK
     Dates: start: 201712, end: 20180803
  14. MINOCYCLINE [Concomitant]
     Active Substance: MINOCYCLINE HYDROCHLORIDE
     Dosage: UNK
     Dates: start: 201712, end: 20180803
  15. ANTICOAGULANT CITRATE DEXTROSE SOLUTION (ACD) NOS [Concomitant]
     Active Substance: CITRIC ACID MONOHYDRATE\DEXTROSE\SODIUM CITRATE
     Dosage: UNK
     Dates: start: 20180702, end: 20180702
  16. PLATELETS [Concomitant]
     Active Substance: HUMAN PLATELET, ALLOGENIC
     Dosage: UNK
     Dates: start: 20180802, end: 20180802
  17. PLATELETS [Concomitant]
     Active Substance: HUMAN PLATELET, ALLOGENIC
     Dosage: UNK
     Dates: start: 20180806, end: 20180806
  18. PLATELETS [Concomitant]
     Active Substance: HUMAN PLATELET, ALLOGENIC
     Dosage: UNK
     Dates: start: 20180809, end: 20180809
  19. PLATELETS [Concomitant]
     Active Substance: HUMAN PLATELET, ALLOGENIC
     Dosage: UNK
     Dates: start: 20180814, end: 20180814
  20. ENOXAPARIN [Concomitant]
     Active Substance: ENOXAPARIN
     Dosage: 40,MG,DAILY
     Route: 058
     Dates: start: 20180730, end: 20180830
  21. ATORVASTATIN [Concomitant]
     Active Substance: ATORVASTATIN
     Dosage: UNK
     Dates: start: 2013, end: 20180801
  22. OXYCODONE [Concomitant]
     Active Substance: OXYCODONE
     Dosage: 5,MG,AS NECESSARY
     Route: 048
     Dates: start: 20180907, end: 20180911
  23. FILGRASTIM [Concomitant]
     Active Substance: FILGRASTIM
     Dosage: 300,OTHER,DAILY
     Route: 058
     Dates: start: 20180821, end: 20180829
  24. FILGRASTIM [Concomitant]
     Active Substance: FILGRASTIM
     Dosage: 300,MG,OTHER
     Route: 058
     Dates: start: 20180911, end: 20180911
  25. PLATELETS [Concomitant]
     Active Substance: HUMAN PLATELET, ALLOGENIC
     Dosage: UNK
     Dates: start: 20180811, end: 20180811
  26. PLATELETS [Concomitant]
     Active Substance: HUMAN PLATELET, ALLOGENIC
     Dosage: 1,OTHER,OTHER
     Route: 041
     Dates: start: 20180820, end: 20180820
  27. ACETAMINOPHEN. [Concomitant]
     Active Substance: ACETAMINOPHEN
     Dosage: 650,MG,AS NECESSARY
     Route: 048
     Dates: start: 20180731, end: 20180830
  28. LEVETIRACETAM. [Concomitant]
     Active Substance: LEVETIRACETAM
     Dosage: 1000,MG,TWICE DAILY
     Route: 048
     Dates: start: 20180824, end: 20180826
  29. LEVOFLOXACIN. [Concomitant]
     Active Substance: LEVOFLOXACIN
     Dosage: UNK
     Dates: start: 20180730, end: 20180730
  30. ACYCLOVIR                          /00587301/ [Concomitant]
     Active Substance: ACYCLOVIR
     Dosage: UNK
     Dates: start: 20180730, end: 20180803
  31. ACYCLOVIR                          /00587301/ [Concomitant]
     Active Substance: ACYCLOVIR
     Dosage: 400,MG,THREE TIMES DAILY
     Route: 048
     Dates: start: 20180824, end: 20180912
  32. PLATELETS [Concomitant]
     Active Substance: HUMAN PLATELET, ALLOGENIC
     Dosage: 1,OTHER,OTHER
     Route: 041
     Dates: start: 20180828, end: 20180828
  33. ONDANSETRON [Concomitant]
     Active Substance: ONDANSETRON
     Dosage: 4,MG,AS NECESSARY
     Route: 048
     Dates: start: 20180510, end: 20180510
  34. ONDANSETRON [Concomitant]
     Active Substance: ONDANSETRON
     Dosage: 16 MG, UNK
     Dates: start: 20180725, end: 20180727
  35. ACETAMINOPHEN. [Concomitant]
     Active Substance: ACETAMINOPHEN
     Dosage: UNK
     Dates: start: 20180730, end: 20180730
  36. LEVETIRACETAM. [Concomitant]
     Active Substance: LEVETIRACETAM
     Dosage: UNK
     Dates: start: 20180730, end: 20180803
  37. ACYCLOVIR                          /00587301/ [Concomitant]
     Active Substance: ACYCLOVIR
     Dosage: UNK
     Dates: start: 20180804, end: 20180807
  38. OXYCODONE [Concomitant]
     Active Substance: OXYCODONE
     Dosage: 5,MG,AS NECESSARY
     Route: 048
     Dates: start: 20180327, end: 20180830
  39. POTASSIUM CHLORIDE. [Concomitant]
     Active Substance: POTASSIUM CHLORIDE
     Dosage: UNK
     Dates: start: 20180702, end: 20180702
  40. FILGRASTIM [Concomitant]
     Active Substance: FILGRASTIM
     Dosage: UNK
     Dates: start: 20180702, end: 20180702
  41. ALLOPURINOL. [Concomitant]
     Active Substance: ALLOPURINOL
     Dosage: UNK
     Dates: start: 20180725, end: 20180808
  42. PLATELETS [Concomitant]
     Active Substance: HUMAN PLATELET, ALLOGENIC
     Dosage: 1,OTHER,OTHER
     Route: 041
     Dates: start: 20180825, end: 20180825
  43. PLATELETS [Concomitant]
     Active Substance: HUMAN PLATELET, ALLOGENIC
     Dosage: 1,OTHER,DAILY
     Route: 041
     Dates: start: 20180829, end: 20180829
  44. SODIUM CHLORIDE. [Concomitant]
     Active Substance: SODIUM CHLORIDE
     Dosage: UNK
     Dates: start: 20180728, end: 20180728
  45. SODIUM CHLORIDE. [Concomitant]
     Active Substance: SODIUM CHLORIDE
     Dosage: UNK
     Dates: start: 20180807, end: 20180808
  46. LOMOTIL [Concomitant]
     Active Substance: ATROPINE SULFATE\DIPHENOXYLATE HYDROCHLORIDE
     Dosage: UNK
     Dates: start: 20180627, end: 20180628
  47. LEVETIRACETAM. [Concomitant]
     Active Substance: LEVETIRACETAM
     Dosage: UNK
     Dates: start: 20180804, end: 20180810
  48. LEVETIRACETAM. [Concomitant]
     Active Substance: LEVETIRACETAM
     Dosage: 750,MG,TWICE DAILY
     Route: 048
     Dates: start: 20180827, end: 20180829
  49. AXICABTAGENE CILOLEUCEL [Suspect]
     Active Substance: AXICABTAGENE CILOLEUCEL
     Indication: B-CELL LYMPHOMA
     Dosage: 68 ML, ONCE
     Route: 042
     Dates: start: 20180730, end: 20180730
  50. ASPIRIN                            /00002701/ [Concomitant]
     Active Substance: ASPIRIN
     Dosage: 81,MG,DAILY
     Route: 048
     Dates: start: 20180907, end: 20180911
  51. MAGNESIUM OXIDE. [Concomitant]
     Active Substance: MAGNESIUM OXIDE
     Dosage: UNK
     Dates: start: 20180702, end: 20180702
  52. PREDNISONE. [Concomitant]
     Active Substance: PREDNISONE
     Dosage: 40 MG, UNK
     Dates: start: 20180723, end: 20180724
  53. PLATELETS [Concomitant]
     Active Substance: HUMAN PLATELET, ALLOGENIC
     Dosage: 1,OTHER,OTHER
     Route: 041
     Dates: start: 20180816, end: 20180816
  54. SODIUM CHLORIDE. [Concomitant]
     Active Substance: SODIUM CHLORIDE
     Dosage: UNK
     Dates: start: 20180730, end: 20180731
  55. SODIUM CHLORIDE. [Concomitant]
     Active Substance: SODIUM CHLORIDE
     Dosage: 80,ML,OTHER, 0.9%
     Route: 041
     Dates: start: 20180914, end: 20180914
  56. FLUCONAZOLE. [Concomitant]
     Active Substance: FLUCONAZOLE
     Dosage: UNK
     Dates: start: 20180730, end: 20180730
  57. FLUCONAZOLE. [Concomitant]
     Active Substance: FLUCONAZOLE
     Dosage: UNK
     Dates: start: 20180731, end: 20180803
  58. NICOTINE. [Concomitant]
     Active Substance: NICOTINE
     Dosage: UNK
     Dates: start: 20180730, end: 20180805
  59. NICOTINE. [Concomitant]
     Active Substance: NICOTINE
     Dosage: UNK
     Dates: start: 20180806, end: 20180810
  60. BACTRIM DS [Concomitant]
     Active Substance: SULFAMETHOXAZOLE\TRIMETHOPRIM
     Dosage: 160,MG,TWICE DAILY
     Route: 041
     Dates: start: 20180913, end: 20180914
  61. ATORVASTATIN [Concomitant]
     Active Substance: ATORVASTATIN
     Dosage: 40,MG,DAILY
     Route: 048
     Dates: start: 20180907, end: 20190911
  62. FILGRASTIM [Concomitant]
     Active Substance: FILGRASTIM
     Dosage: UNK
     Dates: start: 20180723, end: 20180724
  63. PLATELETS [Concomitant]
     Active Substance: HUMAN PLATELET, ALLOGENIC
     Dosage: UNK
     Dates: start: 20180804, end: 20180804
  64. PLATELETS [Concomitant]
     Active Substance: HUMAN PLATELET, ALLOGENIC
     Dosage: 1,OTHER,OTHER
     Route: 041
     Dates: start: 20180905, end: 20180905
  65. SODIUM CHLORIDE. [Concomitant]
     Active Substance: SODIUM CHLORIDE
     Dosage: UNK
     Dates: start: 20180725, end: 20180727
  66. BENADRYL [Concomitant]
     Active Substance: DIPHENHYDRAMINE HYDROCHLORIDE
     Dosage: ONCE
     Dates: start: 20180725, end: 20180725
  67. FLUCONAZOLE. [Concomitant]
     Active Substance: FLUCONAZOLE
     Dosage: UNK
     Dates: start: 20180804, end: 20180806
  68. NICOTINE. [Concomitant]
     Active Substance: NICOTINE
     Dosage: 14,MG,DAILY
     Route: 061
     Dates: start: 20180811, end: 20180830
  69. ACYCLOVIR                          /00587301/ [Concomitant]
     Active Substance: ACYCLOVIR
     Dosage: UNK
     Dates: start: 20180808, end: 20180808
  70. CALCIUM CARBONATE. [Concomitant]
     Active Substance: CALCIUM CARBONATE
     Dosage: UNK
     Dates: start: 20180702, end: 20180702
  71. FILGRASTIM [Concomitant]
     Active Substance: FILGRASTIM
     Dosage: UNK
     Dates: start: 20180728, end: 20180729
  72. PLATELETS [Concomitant]
     Active Substance: HUMAN PLATELET, ALLOGENIC
     Dosage: UNK
     Dates: start: 20180730, end: 20180730
  73. PLATELETS [Concomitant]
     Active Substance: HUMAN PLATELET, ALLOGENIC
     Dosage: 1,OTHER,OTHER
     Route: 041
     Dates: start: 20180823, end: 20180823
  74. ONDANSETRON [Concomitant]
     Active Substance: ONDANSETRON
     Dosage: 4,MG,AS NECESSARY
     Route: 041
     Dates: start: 20180731, end: 20180830
  75. BENADRYL [Concomitant]
     Active Substance: DIPHENHYDRAMINE HYDROCHLORIDE
     Dosage: UNK
     Dates: start: 20180730, end: 20180730
  76. FLUCONAZOLE. [Concomitant]
     Active Substance: FLUCONAZOLE
     Dosage: 400,MG,DAILY
     Route: 048
     Dates: start: 20180825, end: 20180911
  77. ACYCLOVIR                          /00587301/ [Concomitant]
     Active Substance: ACYCLOVIR
     Dosage: 300,MG,TWICE DAILY
     Route: 041
     Dates: start: 20180809, end: 20180823

REACTIONS (13)
  - Hypoxia [Recovered/Resolved]
  - Pyrexia [Recovered/Resolved]
  - Confusional state [Recovered/Resolved]
  - Muscular weakness [Recovered/Resolved]
  - B-cell lymphoma [Fatal]
  - Respiratory failure [Recovered/Resolved]
  - Confusional state [Recovered/Resolved]
  - Confusional state [Recovered/Resolved]
  - Dysphagia [Recovered/Resolved]
  - Encephalopathy [Recovered/Resolved]
  - Cytokine release syndrome [Recovered/Resolved]
  - Encephalopathy [Recovered/Resolved]
  - Somnolence [Recovered/Resolved]

NARRATIVE: CASE EVENT DATE: 20180731
